FAERS Safety Report 4397709-5 (Version None)
Quarter: 2004Q3

REPORT INFORMATION
  Report Type: 
  Country: None (occurrence: None)
  Receive Date: 20040713
  Receipt Date: 20040630
  Transmission Date: 20050211
  Serious: Yes (Other)
  Sender: FDA-Public Use
  Company Number: SUS1-2004-00178

PATIENT
  Age: 11 Year
  Sex: Male

DRUGS (3)
  1. ADDERALL XR (AMPHETAMINE ASPARTATE, AMPHETAMINE SULFATE, DEXTROAMPHETA [Suspect]
     Indication: ATTENTION DEFICIT/HYPERACTIVITY DISORDER
     Dosage: 10 MG, 1X/DAY: QD
     Dates: start: 20040310, end: 20040314
  2. GUANFACINE HCL [Concomitant]
  3. MULTIPLE VITAMINS (ASCORBID ACID, ERGOCALCIFEROL, FOLIC ACID, RETINOL, [Concomitant]

REACTIONS (6)
  - AGITATION [None]
  - ANOREXIA [None]
  - DYSPNOEA [None]
  - MEDICATION ERROR [None]
  - MEDICATION TAMPERING [None]
  - PALLOR [None]
